FAERS Safety Report 19217103 (Version 1)
Quarter: 2021Q2

REPORT INFORMATION
  Report Type: Spontaneous
  Country: PL (occurrence: PL)
  Receive Date: 20210505
  Receipt Date: 20210505
  Transmission Date: 20210717
  Serious: Yes (Other)
  Sender: FDA-Public Use
  Company Number: PL-INCYTE CORPORATION-2021IN003850

PATIENT

DRUGS (3)
  1. HYDROXYCARBAMIDE [Suspect]
     Active Substance: HYDROXYUREA
     Indication: MYELOFIBROSIS
     Dosage: UNK
     Route: 065
     Dates: start: 201810, end: 202006
  2. JAKAVI [Suspect]
     Active Substance: RUXOLITINIB
     Indication: MYELOFIBROSIS
     Dosage: UNK
     Route: 065
     Dates: start: 201803, end: 201810
  3. JAKAVI [Suspect]
     Active Substance: RUXOLITINIB
     Dosage: 2 X 15 MG
     Route: 065
     Dates: start: 202006

REACTIONS (4)
  - Splenomegaly [Unknown]
  - Osteosclerosis [Unknown]
  - Hepatic steatosis [Unknown]
  - Therapeutic response decreased [Unknown]

NARRATIVE: CASE EVENT DATE: 201810
